FAERS Safety Report 13375110 (Version 1)
Quarter: 2017Q1

REPORT INFORMATION
  Report Type: Spontaneous
  Country: US (occurrence: US)
  Receive Date: 20170327
  Receipt Date: 20170327
  Transmission Date: 20170429
  Serious: No
  Sender: FDA-Public Use
  Company Number: US-009507513-1703USA004561

PATIENT
  Age: 73 Year
  Sex: Male

DRUGS (2)
  1. ELAVIL (ALLOPURINOL) [Concomitant]
     Active Substance: ALLOPURINOL
  2. BELSOMRA [Suspect]
     Active Substance: SUVOREXANT
     Indication: INSOMNIA
     Dosage: UNK
     Route: 048
     Dates: start: 20170307, end: 20170308

REACTIONS (2)
  - Paraesthesia [Recovered/Resolved]
  - Drug ineffective [Unknown]

NARRATIVE: CASE EVENT DATE: 20170307
